FAERS Safety Report 12725631 (Version 1)
Quarter: 2016Q3

REPORT INFORMATION
  Report Type: Spontaneous
  Country: US (occurrence: US)
  Receive Date: 20160906
  Receipt Date: 20160906
  Transmission Date: 20161109
  Serious: Yes (Hospitalization, Disabling, Other)
  Sender: FDA-Public Use
  Company Number: None

PATIENT
  Age: 58 Year
  Sex: Female
  Weight: 67.5 kg

DRUGS (5)
  1. VITAMIN D3 [Concomitant]
     Active Substance: CHOLECALCIFEROL
  2. GLUCOSAMINE CHONDROITIN CARTILAGE COMPLEX [Concomitant]
  3. CARBATROL [Concomitant]
     Active Substance: CARBAMAZEPINE
  4. ZONISAMIDE 100MG 50MG 25 MG [Suspect]
     Active Substance: ZONISAMIDE
     Indication: SEIZURE
     Route: 048
     Dates: start: 20160703, end: 20160831
  5. SUPER JOINT COMPLEX [Concomitant]

REACTIONS (13)
  - Delusion [None]
  - Thinking abnormal [None]
  - Fear [None]
  - Seizure [None]
  - Paranoia [None]
  - Brain injury [None]
  - Somnolence [None]
  - Hallucination [None]
  - Feeling abnormal [None]
  - Anxiety [None]
  - Crying [None]
  - Dizziness [None]
  - Memory impairment [None]

NARRATIVE: CASE EVENT DATE: 20160829
